FAERS Safety Report 6594767-4 (Version None)
Quarter: 2010Q1

REPORT INFORMATION
  Report Type: 
  Country: None (occurrence: None)
  Receive Date: 20100222
  Receipt Date: 20100212
  Transmission Date: 20100710
  Serious: Yes (Other)
  Sender: FDA-Public Use
  Company Number: US-ROCHE-642926

PATIENT
  Sex: Female
  Weight: 54.4 kg

DRUGS (4)
  1. CAPECITABINE [Suspect]
     Indication: COLORECTAL CANCER
     Route: 048
     Dates: start: 20090211, end: 20090606
  2. CAPECITABINE [Suspect]
     Dosage: DOSE REPORTED: 500 MG IN AM AND 1000 MG IN PM.
     Route: 048
     Dates: end: 20091031
  3. CAPECITABINE [Suspect]
     Route: 048
  4. CAPECITABINE [Suspect]
     Dosage: 1000 MG IN THE MORNING AND 500 MG IN THE EVENING
     Route: 048
     Dates: start: 20100122

REACTIONS (8)
  - DIARRHOEA [None]
  - FALL [None]
  - FATIGUE [None]
  - HIP FRACTURE [None]
  - MALAISE [None]
  - NAUSEA [None]
  - SURGERY [None]
  - VOMITING [None]
